FAERS Safety Report 4554788-X (Version None)
Quarter: 2005Q1

REPORT INFORMATION
  Report Type: 
  Country: None (occurrence: None)
  Receive Date: 20050118
  Receipt Date: 20050107
  Transmission Date: 20050727
  Serious: Yes (Death)
  Sender: FDA-Public Use
  Company Number: CA-JNJFOC-20050102229

PATIENT
  Sex: Male

DRUGS (3)
  1. DURAGESIC [Suspect]
     Indication: INTENTIONAL MISUSE
  2. CELEXA [Concomitant]
     Indication: DEPRESSION
  3. SEROQUEL [Concomitant]

REACTIONS (3)
  - ACCIDENTAL OVERDOSE [None]
  - BLOOD ALCOHOL INCREASED [None]
  - DRUG ABUSER [None]
